FAERS Safety Report 7236959-7 (Version None)
Quarter: 2011Q1

REPORT INFORMATION
  Report Type: 
  Country: None (occurrence: None)
  Receive Date: 20110121
  Receipt Date: 20110118
  Transmission Date: 20110831
  Serious: Yes (Other)
  Sender: FDA-Public Use
  Company Number: FI-BIOGENIDEC-2011BI002119

PATIENT
  Age: 40 Year
  Sex: Female

DRUGS (6)
  1. TYSABRI [Suspect]
     Indication: MULTIPLE SCLEROSIS
     Route: 042
     Dates: start: 20070829, end: 20110110
  2. SIRDALUD [Concomitant]
     Indication: MUSCLE SPASTICITY
  3. BACLOFEN [Concomitant]
     Indication: MUSCLE SPASTICITY
  4. ANTIBIOTICS [Concomitant]
     Indication: URINARY TRACT INFECTION
  5. YASMIN [Concomitant]
     Indication: CONTRACEPTION
  6. DETRUSITOL [Concomitant]
     Indication: BLADDER DYSFUNCTION

REACTIONS (1)
  - MALIGNANT MELANOMA [None]
